FAERS Safety Report 9169505 (Version 2)
Quarter: 2013Q2

REPORT INFORMATION
  Report Type: Spontaneous
  Country: CA (occurrence: CA)
  Receive Date: 20130318
  Receipt Date: 20130417
  Transmission Date: 20140414
  Serious: Yes (Hospitalization, Other)
  Sender: FDA-Public Use
  Company Number: CA-ELI_LILLY_AND_COMPANY-CA201303003401

PATIENT
  Age: 70 Year
  Sex: Male
  Weight: 77.1 kg

DRUGS (6)
  1. CIALIS [Suspect]
     Indication: ERECTILE DYSFUNCTION
     Dosage: 5 MG, UNK
     Route: 048
  2. CIALIS [Suspect]
     Dosage: 20 MG, PRN
     Route: 048
  3. CIALIS [Suspect]
     Dosage: 1 DF, PRN
  4. WARFARIN [Concomitant]
     Indication: ATRIAL FIBRILLATION
     Dosage: 3 MG, UNK
  5. METHOCARBAMOL [Concomitant]
     Indication: BACK PAIN
     Dosage: 400 MG, UNKNOWN
  6. DILTIAZEM [Concomitant]
     Dosage: 120 MG, UNKNOWN

REACTIONS (9)
  - Lower limb fracture [Unknown]
  - Hip fracture [Unknown]
  - Fall [Unknown]
  - Hernia [Unknown]
  - Back pain [Unknown]
  - Vision blurred [Unknown]
  - Diarrhoea [Unknown]
  - Headache [Unknown]
  - Drug ineffective [Unknown]
